FAERS Safety Report 9971627 (Version 1)
Quarter: 2014Q1

REPORT INFORMATION
  Report Type: Spontaneous
  Country: US (occurrence: None)
  Receive Date: 20140127
  Receipt Date: 20140127
  Transmission Date: 20141002
  Serious: No
  Sender: FDA-Public Use
  Company Number: 1236807

PATIENT
  Sex: Female

DRUGS (7)
  1. RITUXAN [Suspect]
     Indication: RHEUMATOID ARTHRITIS
     Dosage: DAY 1 AND 15 EERY 6 WEEKS
     Route: 042
  2. ENBREL (ETANERCEPT) [Concomitant]
  3. CORTISONE (CORTISONE ACETATE) [Concomitant]
  4. REMICADE (INFLIXIMAB) [Concomitant]
  5. HUMIRA (ADALIMUMAB) [Concomitant]
  6. ORENCIA (ABATACEPT) [Concomitant]
  7. ACETEMRA (TOCILZUMAB) [Concomitant]

REACTIONS (2)
  - Infusion related reaction [None]
  - Hypersensitivity [None]
